FAERS Safety Report 8115889-2 (Version None)
Quarter: 2012Q1

REPORT INFORMATION
  Report Type: 
  Country: None (occurrence: None)
  Receive Date: 20120206
  Receipt Date: 20120126
  Transmission Date: 20120608
  Serious: Yes (Life-Threatening, Hospitalization)
  Sender: FDA-Public Use
  Company Number: CH-BRISTOL-MYERS SQUIBB COMPANY-16372039

PATIENT
  Age: 54 Year
  Sex: Male

DRUGS (5)
  1. SPRYCEL [Suspect]
     Indication: CHRONIC LYMPHOCYTIC LEUKAEMIA
     Route: 048
     Dates: start: 20111116, end: 20120103
  2. METOPROLOL TARTRATE AND HYDROCHLOROTHIAZIDE [Concomitant]
     Dosage: DRUG STOPPED ON 03JAN12,RESTARTED ON 16JAN12.
  3. PERINDOPRIL ERBUMINE [Concomitant]
  4. CALCIMAGON-D3 [Concomitant]
  5. TAMBOCOR [Concomitant]
     Dosage: 50MG2X/DAY UPTO 17JAN.

REACTIONS (1)
  - VENTRICULAR TACHYCARDIA [None]
